FAERS Safety Report 4647991-1 (Version None)
Quarter: 2005Q2

REPORT INFORMATION
  Report Type: 
  Country: None (occurrence: None)
  Receive Date: 20050331
  Receipt Date: 20050119
  Transmission Date: 20051028
  Serious: No
  Sender: FDA-Public Use
  Company Number: 05P-163-0287407

PATIENT
  Age: 43 Year
  Sex: Female
  Weight: 58.0604 kg

DRUGS (4)
  1. HUMIRA [Suspect]
     Indication: RHEUMATOID ARTHRITIS
     Dosage: 40 MG, 1 IN 2 WK, SUBCUTANEOUS
     Route: 058
     Dates: start: 20030801, end: 20050114
  2. PREDNISONE [Concomitant]
  3. CALCIUM GLUCONATE [Concomitant]
  4. IBUPROFEN [Concomitant]

REACTIONS (2)
  - COUGH [None]
  - INFECTION [None]
